FAERS Safety Report 9636779 (Version 1)
Quarter: 2013Q4

REPORT INFORMATION
  Report Type: Spontaneous
  Country: US (occurrence: US)
  Receive Date: 20131022
  Receipt Date: 20131022
  Transmission Date: 20140711
  Serious: Yes (Hospitalization)
  Sender: FDA-Public Use
  Company Number: US-JNJFOC-20131004892

PATIENT
  Sex: Female

DRUGS (15)
  1. TYLENOL UNSPECIFIED [Suspect]
     Indication: PAIN
     Route: 065
  2. TYLENOL UNSPECIFIED [Suspect]
     Indication: MIGRAINE
     Route: 065
  3. IBUPROFEN [Suspect]
     Route: 065
  4. IBUPROFEN [Suspect]
     Indication: MIGRAINE
     Route: 065
  5. DARVOCET [Suspect]
     Indication: PAIN
     Route: 065
  6. DARVOCET [Suspect]
     Indication: HEADACHE
     Route: 065
  7. EXCEDRIN MIGRAINE [Suspect]
     Indication: MIGRAINE
     Route: 065
     Dates: start: 2001
  8. EXCEDRIN EXTRA STRENGTH [Suspect]
     Indication: MYALGIA
     Route: 065
  9. EXCEDRIN EXTRA STRENGTH [Suspect]
     Indication: BACK PAIN
     Route: 065
  10. EXCEDRIN EXTRA STRENGTH [Suspect]
     Indication: HEADACHE
     Route: 065
  11. INSULIN [Suspect]
     Indication: DIABETES MELLITUS
     Route: 065
  12. INSULIN [Suspect]
     Indication: DIABETES MELLITUS
     Route: 048
     Dates: start: 1997
  13. LEVEMIR [Concomitant]
     Indication: GESTATIONAL DIABETES
  14. METFORMIN [Concomitant]
     Indication: GESTATIONAL DIABETES
     Route: 065
  15. GLIMEPIRIDE [Concomitant]
     Indication: GESTATIONAL DIABETES
     Route: 065

REACTIONS (10)
  - Exposure during pregnancy [Recovered/Resolved]
  - Premature labour [Recovered/Resolved]
  - Complication of pregnancy [Recovered/Resolved]
  - Diabetes mellitus inadequate control [Unknown]
  - Fibromyalgia [Unknown]
  - Blood disorder [Unknown]
  - Drug withdrawal syndrome [Unknown]
  - Crying [Unknown]
  - Migraine [Recovered/Resolved]
  - Blood pressure fluctuation [Unknown]
